FAERS Safety Report 23092407 (Version 1)
Quarter: 2023Q4

REPORT INFORMATION
  Report Type: Spontaneous
  Country: FR (occurrence: FR)
  Receive Date: 20231021
  Receipt Date: 20231021
  Transmission Date: 20240110
  Serious: Yes (Other)
  Sender: FDA-Public Use
  Company Number: None

PATIENT
  Age: 13 Year
  Sex: Male
  Weight: 48 kg

DRUGS (6)
  1. CIPROFLOXACIN [Suspect]
     Active Substance: CIPROFLOXACIN
     Indication: Arthritis infective
     Dosage: 50MG MORNING AND EVENING
     Dates: start: 20230529, end: 20230706
  2. CEFAZOLIN SODIUM [Concomitant]
     Active Substance: CEFAZOLIN SODIUM
     Indication: Arthritis infective
     Dates: start: 20230522, end: 20230529
  3. RIFAMPIN [Concomitant]
     Active Substance: RIFAMPIN
     Indication: Arthritis infective
     Dates: start: 20230529, end: 20230628
  4. LINEZOLID [Concomitant]
     Active Substance: LINEZOLID
     Indication: Arthritis infective
     Dates: start: 20230706, end: 20230807
  5. BACTRIM [Concomitant]
     Active Substance: SULFAMETHOXAZOLE\TRIMETHOPRIM
     Indication: Arthritis infective
     Dates: start: 20230628, end: 20230706
  6. CLOXACILLIN [Concomitant]
     Active Substance: CLOXACILLIN
     Indication: Arthritis infective
     Dates: start: 20230514, end: 20230522

REACTIONS (1)
  - Neutropenia [Recovering/Resolving]

NARRATIVE: CASE EVENT DATE: 20230621
